FAERS Safety Report 16199668 (Version 1)
Quarter: 2019Q2

REPORT INFORMATION
  Report Type: Spontaneous
  Country: US (occurrence: US)
  Receive Date: 20190415
  Receipt Date: 20190415
  Transmission Date: 20190711
  Serious: Yes (Other)
  Sender: FDA-Public Use
  Company Number: US-ADAPT PHARMA INC-2019ADP00042

PATIENT
  Sex: Female

DRUGS (33)
  1. XYREM [Suspect]
     Active Substance: SODIUM OXYBATE
     Dosage: 4.5 G, UNK
     Route: 048
     Dates: start: 201308
  2. BUSPIRONE HYDROCHLORIDE. [Concomitant]
     Active Substance: BUSPIRONE HYDROCHLORIDE
     Dosage: UNK
     Dates: start: 20130911
  3. VERAPAMIL [Concomitant]
     Active Substance: VERAPAMIL HYDROCHLORIDE
     Dosage: UNK
     Dates: start: 201604
  4. WELLBUTRIN [Concomitant]
     Active Substance: BUPROPION HYDROCHLORIDE
     Dosage: UNK
     Dates: start: 201604
  5. CALCIUM CARBONATE. [Concomitant]
     Active Substance: CALCIUM CARBONATE
     Dosage: UNK
     Dates: start: 20151007
  6. NALOXONE HYDROCHLORIDE. [Suspect]
     Active Substance: NALOXONE HYDROCHLORIDE
     Indication: OVERDOSE
     Dosage: UNK, UNK
     Route: 065
     Dates: start: 2016, end: 2016
  7. ATIVAN [Concomitant]
     Active Substance: LORAZEPAM
  8. CAFFEINE. [Concomitant]
     Active Substance: CAFFEINE
     Dosage: UNK
     Dates: start: 20130301
  9. COLACE [Concomitant]
     Active Substance: DOCUSATE SODIUM
     Dosage: UNK
     Dates: start: 201604
  10. IMITREX [Concomitant]
     Active Substance: SUMATRIPTAN SUCCINATE
     Dosage: UNK
     Dates: start: 20150119
  11. LEVSIN [Concomitant]
     Active Substance: HYOSCYAMINE SULFATE
     Dosage: UNK
     Dates: start: 20140128
  12. MORPHINE SULFATE. [Concomitant]
     Active Substance: MORPHINE SULFATE
     Dosage: UNK
     Dates: start: 20150410
  13. PROMETHAZINE [Concomitant]
     Active Substance: PROMETHAZINE\PROMETHAZINE HYDROCHLORIDE
     Dosage: UNK
     Dates: start: 20120601
  14. VITAMIN B [Concomitant]
     Active Substance: VITAMIN B
     Dosage: UNK
     Dates: start: 20151007
  15. BOTOX [Suspect]
     Active Substance: ONABOTULINUMTOXINA
     Indication: MIGRAINE
     Dosage: UNK, UNK
     Route: 065
     Dates: start: 201506
  16. XYREM [Suspect]
     Active Substance: SODIUM OXYBATE
     Indication: NARCOLEPSY
     Dosage: 1.13 G, UNK
     Route: 048
     Dates: start: 201307, end: 201307
  17. FLEXERIL [Concomitant]
     Active Substance: CYCLOBENZAPRINE HYDROCHLORIDE
     Dosage: UNK
     Dates: start: 20120701
  18. NUEDEXTA [Concomitant]
     Active Substance: DEXTROMETHORPHAN HYDROBROMIDE\QUINIDINE SULFATE
     Dosage: UNK
     Dates: start: 201604
  19. DESOXYN [Concomitant]
     Active Substance: METHAMPHETAMINE HYDROCHLORIDE
     Dosage: UNK
     Dates: start: 20140919, end: 201604
  20. METAMFETAMINE [Concomitant]
     Active Substance: METHAMPHETAMINE
     Dosage: UNK
     Dates: start: 20151007, end: 201607
  21. MOTRIN IB [Concomitant]
     Active Substance: IBUPROFEN
     Dosage: UNK
     Dates: start: 201604
  22. PERCOCET [Concomitant]
     Active Substance: ACETAMINOPHEN\OXYCODONE HYDROCHLORIDE
     Dosage: UNK
     Dates: start: 20130904, end: 201604
  23. VITAMIN D3 [Concomitant]
     Active Substance: CHOLECALCIFEROL
     Dosage: UNK
     Dates: start: 20151007
  24. WELLBUTRIN [Concomitant]
     Active Substance: BUPROPION HYDROCHLORIDE
     Dosage: UNK
     Dates: start: 20130612, end: 201604
  25. XYZAL [Concomitant]
     Active Substance: LEVOCETIRIZINE DIHYDROCHLORIDE
     Dosage: UNK
     Dates: start: 20140910
  26. XYREM [Suspect]
     Active Substance: SODIUM OXYBATE
     Dosage: UNK, UNK
     Route: 048
     Dates: start: 201307, end: 201308
  27. ARMOUR THYROID [Concomitant]
     Active Substance: THYROID, PORCINE
     Dosage: UNK
     Dates: start: 20121201
  28. OXYCODONE, PARACETAMOL [Concomitant]
     Active Substance: ACETAMINOPHEN\OXYCODONE HYDROCHLORIDE
     Dosage: UNK
     Dates: start: 201604
  29. ZOFRAN [Concomitant]
     Active Substance: ONDANSETRON HYDROCHLORIDE
     Dosage: UNK
     Dates: start: 20130501
  30. PROZAC [Concomitant]
     Active Substance: FLUOXETINE HYDROCHLORIDE
     Dosage: UNK
     Dates: start: 20141004
  31. BUSPIRONE HYDROCHLORIDE. [Concomitant]
     Active Substance: BUSPIRONE HYDROCHLORIDE
     Dosage: UNK
     Dates: start: 201604, end: 201604
  32. DESOXYN [Concomitant]
     Active Substance: METHAMPHETAMINE HYDROCHLORIDE
     Dosage: UNK
     Dates: start: 201604
  33. MAXALT [Concomitant]
     Active Substance: RIZATRIPTAN BENZOATE
     Dosage: UNK
     Dates: start: 201604

REACTIONS (1)
  - Psychotic disorder [Unknown]

NARRATIVE: CASE EVENT DATE: 2016
